FAERS Safety Report 8508825-8 (Version None)
Quarter: 2012Q3

REPORT INFORMATION
  Report Type: 
  Country: None (occurrence: None)
  Receive Date: 20120713
  Receipt Date: 20120709
  Transmission Date: 20120928
  Serious: Yes (Other)
  Sender: FDA-Public Use
  Company Number: US-PFIZER INC-2012148622

PATIENT
  Sex: Female

DRUGS (1)
  1. ZOLOFT [Suspect]
     Dosage: 100 MG, 2X/DAY
     Route: 048

REACTIONS (3)
  - CONVULSION [None]
  - DEPRESSION [None]
  - PAIN [None]
